FAERS Safety Report 10098006 (Version 1)
Quarter: 2014Q2

REPORT INFORMATION
  Report Type: Spontaneous
  Country: US (occurrence: US)
  Receive Date: 20140423
  Receipt Date: 20140423
  Transmission Date: 20141212
  Serious: No
  Sender: FDA-Public Use
  Company Number: US-009507513-1404USA010552

PATIENT
  Age: 72 Year
  Sex: Male

DRUGS (1)
  1. NASONEX [Suspect]
     Indication: SINUSITIS
     Dosage: UNK
     Route: 045

REACTIONS (4)
  - Rhinorrhoea [Not Recovered/Not Resolved]
  - Sneezing [Not Recovered/Not Resolved]
  - Drug dose omission [Unknown]
  - Product quality issue [Unknown]
